FAERS Safety Report 6998076-0 (Version None)
Quarter: 2010Q3

REPORT INFORMATION
  Report Type: 
  Country: None (occurrence: None)
  Receive Date: 20100920
  Receipt Date: 20070515
  Transmission Date: 20110219
  Serious: No
  Sender: FDA-Public Use
  Company Number: US-ASTRAZENECA-2006UW12231

PATIENT
  Age: 10016 Day
  Sex: Female
  Weight: 103.9 kg

DRUGS (20)
  1. SEROQUEL [Suspect]
     Indication: MENTAL DISORDER
     Route: 048
     Dates: start: 20030101, end: 20040101
  2. SEROQUEL [Suspect]
     Indication: ANXIETY
     Route: 048
     Dates: start: 20030101, end: 20040101
  3. SEROQUEL [Suspect]
     Indication: SLEEP DISORDER
     Route: 048
     Dates: start: 20030101, end: 20040101
  4. SEROQUEL [Suspect]
     Indication: AGITATION
     Route: 048
     Dates: start: 20030101, end: 20040101
  5. SEROQUEL [Suspect]
     Dosage: 25 - 150 MG
     Route: 048
     Dates: start: 20030214, end: 20030226
  6. SEROQUEL [Suspect]
     Dosage: 25 - 150 MG
     Route: 048
     Dates: start: 20030214, end: 20030226
  7. SEROQUEL [Suspect]
     Dosage: 25 - 150 MG
     Route: 048
     Dates: start: 20030214, end: 20030226
  8. SEROQUEL [Suspect]
     Dosage: 25 - 150 MG
     Route: 048
     Dates: start: 20030214, end: 20030226
  9. SEROQUEL [Suspect]
     Dosage: 25 - 150 MG
     Route: 048
     Dates: start: 20030303, end: 20070108
  10. SEROQUEL [Suspect]
     Dosage: 25 - 150 MG
     Route: 048
     Dates: start: 20030303, end: 20070108
  11. SEROQUEL [Suspect]
     Dosage: 25 - 150 MG
     Route: 048
     Dates: start: 20030303, end: 20070108
  12. SEROQUEL [Suspect]
     Dosage: 25 - 150 MG
     Route: 048
     Dates: start: 20030303, end: 20070108
  13. ZYPREXA [Suspect]
     Indication: PSYCHOTIC DISORDER
     Dosage: 10 - 20 MG
     Route: 048
     Dates: start: 20001101
  14. ADVANDA [Concomitant]
  15. CLOZARIL [Concomitant]
  16. HALDOL [Concomitant]
     Dates: start: 20010219, end: 20040217
  17. RISPERDAL [Concomitant]
     Dosage: 2 - 4 MG
     Route: 048
     Dates: start: 20020719
  18. LEXAPRO [Concomitant]
     Dosage: 10 - 20 MG
     Route: 048
     Dates: start: 20030226
  19. COZAAR [Concomitant]
     Route: 048
     Dates: start: 20031223
  20. LOVASTATIN [Concomitant]
     Dosage: 20 - 40 MG
     Route: 048
     Dates: start: 20031223

REACTIONS (5)
  - DIABETES MELLITUS [None]
  - DIABETES MELLITUS INADEQUATE CONTROL [None]
  - NIGHTMARE [None]
  - TYPE 2 DIABETES MELLITUS [None]
  - VISUAL IMPAIRMENT [None]
